FAERS Safety Report 16785094 (Version 4)
Quarter: 2019Q4

REPORT INFORMATION
  Report Type: Report from Study
  Country: US (occurrence: US)
  Receive Date: 20190909
  Receipt Date: 20191029
  Transmission Date: 20200122
  Serious: Yes (Hospitalization, Other)
  Sender: FDA-Public Use
  Company Number: US-GILEAD-2019-0426952

PATIENT
  Age: 6 Year
  Sex: Male

DRUGS (21)
  1. NYSTATIN. [Concomitant]
     Active Substance: NYSTATIN
  2. PULMOZYME [Concomitant]
     Active Substance: DORNASE ALFA
  3. ERYTHROMYCIN. [Concomitant]
     Active Substance: ERYTHROMYCIN
  4. LORATADINE. [Concomitant]
     Active Substance: LORATADINE
  5. TOBRAMYCIN. [Concomitant]
     Active Substance: TOBRAMYCIN
  6. BOOST [Concomitant]
     Active Substance: DIETARY SUPPLEMENT
  7. AQUADEKS PEDIATRIC LIQUID [Concomitant]
     Active Substance: MINERALS\VITAMINS
  8. HYPERSAL [Concomitant]
     Active Substance: SODIUM CHLORIDE
  9. LEVOFLOXACIN. [Concomitant]
     Active Substance: LEVOFLOXACIN
  10. QVAR [Concomitant]
     Active Substance: BECLOMETHASONE DIPROPIONATE
  11. CREON [Concomitant]
     Active Substance: PANCRELIPASE AMYLASE\PANCRELIPASE LIPASE\PANCRELIPASE PROTEASE
  12. IPRATROPIUM [Concomitant]
     Active Substance: IPRATROPIUM
  13. MIRALAX [Concomitant]
     Active Substance: POLYETHYLENE GLYCOL 3350
  14. OMEPRAZOLE. [Concomitant]
     Active Substance: OMEPRAZOLE
  15. ORKAMBI [Concomitant]
     Active Substance: IVACAFTOR\LUMACAFTOR
  16. VITAMIN D3 [Concomitant]
     Active Substance: CHOLECALCIFEROL
  17. BETHKIS [Concomitant]
     Active Substance: TOBRAMYCIN
  18. AZTREONAM LYSINE [Suspect]
     Active Substance: AZTREONAM LYSINE
     Indication: CYSTIC FIBROSIS
     Dosage: 75 MG, TID; 28 DAYS ON, 28 DAYS OFF
     Dates: start: 20180410
  19. BACITRACIN. [Concomitant]
     Active Substance: BACITRACIN
  20. CIPROFLOXACIN. [Concomitant]
     Active Substance: CIPROFLOXACIN
  21. DOCUSATE [Concomitant]
     Active Substance: DOCUSATE

REACTIONS (4)
  - Cystic fibrosis [Unknown]
  - Cystic fibrosis [Not Recovered/Not Resolved]
  - Cystic fibrosis respiratory infection suppression [Unknown]
  - Cystic fibrosis [Unknown]

NARRATIVE: CASE EVENT DATE: 20190824
